FAERS Safety Report 4709178-3 (Version None)
Quarter: 2005Q3

REPORT INFORMATION
  Report Type: 
  Country: None (occurrence: None)
  Receive Date: 20050707
  Receipt Date: 20050707
  Transmission Date: 20060218
  Serious: Yes (Other)
  Sender: FDA-Public Use
  Company Number: None

PATIENT
  Age: 83 Year
  Sex: Male
  Weight: 57.1532 kg

DRUGS (9)
  1. QUINIDINE 200MG WATSON [Suspect]
     Indication: MUSCLE SPASMS
     Dosage: 200MG QHS PRN ORAL
     Route: 048
     Dates: start: 20050414, end: 20050706
  2. CYPROHEPTADINE HCL [Concomitant]
  3. FLUOXETINE [Concomitant]
  4. NITROGLYCERIN [Concomitant]
  5. OXYBUTYNIN [Concomitant]
  6. VICODIN [Concomitant]
  7. RANITIDINE [Concomitant]
  8. ETODOLAC [Concomitant]
  9. DOCUSATE [Concomitant]

REACTIONS (2)
  - DRUG PRESCRIBING ERROR [None]
  - MEDICATION ERROR [None]
